FAERS Safety Report 4923204-8 (Version None)
Quarter: 2006Q1

REPORT INFORMATION
  Report Type: 
  Country: None (occurrence: None)
  Receive Date: 20060127
  Receipt Date: 20051215
  Transmission Date: 20060701
  Serious: Yes (Other)
  Sender: FDA-Public Use
  Company Number: 2005139168

PATIENT
  Age: 86 Year
  Sex: Female
  Weight: 65.7716 kg

DRUGS (11)
  1. LYRICA [Suspect]
     Indication: DIABETIC NEUROPATHY
     Dosage: 100 MG (50 MG, 2 IN 1 D), ORAL
     Route: 048
     Dates: start: 20051004, end: 20051204
  2. DITROPAN XL [Concomitant]
  3. CELEBREX [Concomitant]
  4. GLIPIZIDE [Concomitant]
  5. POTASSIUM [Concomitant]
  6. VITAMIN B COMPLEX (SEE IMAGE) [Concomitant]
  7. VITAMINS [Concomitant]
  8. VITAMIN B1 TAB [Concomitant]
  9. NEXIUM [Concomitant]
  10. PLAVIX [Concomitant]
  11. ATACAND [Concomitant]

REACTIONS (6)
  - ACTIVITIES OF DAILY LIVING IMPAIRED [None]
  - DIARRHOEA [None]
  - DIFFICULTY IN WALKING [None]
  - DIZZINESS [None]
  - FEELING DRUNK [None]
  - SOMNOLENCE [None]
